FAERS Safety Report 8022093-5 (Version None)
Quarter: 2012Q1

REPORT INFORMATION
  Report Type: 
  Country: None (occurrence: None)
  Receive Date: 20120104
  Receipt Date: 20111228
  Transmission Date: 20120608
  Serious: No
  Sender: FDA-Public Use
  Company Number: US-BAYER-2011-102206

PATIENT
  Age: 69 Year
  Sex: Female

DRUGS (2)
  1. ASPIRIN [Suspect]
     Dosage: 1 U, QD
     Route: 048
  2. METOPROLOL TARTRATE [Concomitant]

REACTIONS (2)
  - HEADACHE [None]
  - FACIAL PAIN [None]
